FAERS Safety Report 16234809 (Version 3)
Quarter: 2019Q2

REPORT INFORMATION
  Report Type: Spontaneous
  Country: EG (occurrence: EG)
  Receive Date: 20190424
  Receipt Date: 20190516
  Transmission Date: 20190711
  Serious: Yes (Other)
  Sender: FDA-Public Use
  Company Number: PHHY2019EG093604

PATIENT
  Sex: Male

DRUGS (2)
  1. CATAFLAM [Suspect]
     Active Substance: DICLOFENAC POTASSIUM
     Indication: PAIN IN EXTREMITY
     Dosage: 1 DF, TID
     Route: 048
     Dates: start: 20190415, end: 20190417
  2. OMEGA 3 [Concomitant]
     Active Substance: OMEGA-3 FATTY ACIDS
     Indication: PRODUCT USED FOR UNKNOWN INDICATION
     Dosage: UNK UNK, TID
     Route: 048

REACTIONS (1)
  - Varicella [Recovering/Resolving]

NARRATIVE: CASE EVENT DATE: 20190417
